FAERS Safety Report 10758265 (Version 1)
Quarter: 2015Q1

REPORT INFORMATION
  Report Type: Report from Study
  Country: US (occurrence: US)
  Receive Date: 20150203
  Receipt Date: 20150203
  Transmission Date: 20150721
  Serious: Yes (Death, Hospitalization)
  Sender: FDA-Public Use
  Company Number: US-ABBVIE-15K-163-1341018-00

PATIENT
  Age: 72 Year
  Sex: Male
  Weight: 59.02 kg

DRUGS (4)
  1. HUMIRA [Suspect]
     Active Substance: ADALIMUMAB
     Route: 065
     Dates: start: 2012
  2. HUMIRA [Suspect]
     Active Substance: ADALIMUMAB
     Route: 065
     Dates: end: 201409
  3. HUMIRA [Suspect]
     Active Substance: ADALIMUMAB
     Route: 065
     Dates: start: 2012, end: 2012
  4. HUMIRA [Suspect]
     Active Substance: ADALIMUMAB
     Indication: CROHN^S DISEASE
     Route: 065
     Dates: start: 2012, end: 2012

REACTIONS (10)
  - Fall [Fatal]
  - Hepatic cirrhosis [Fatal]
  - Swelling [Fatal]
  - Cerebral haemorrhage [Fatal]
  - Rib fracture [Fatal]
  - Cholangitis sclerosing [Fatal]
  - Chronic hepatic failure [Fatal]
  - Asthenia [Fatal]
  - Pneumothorax [Fatal]
  - Ascites [Fatal]

NARRATIVE: CASE EVENT DATE: 201406
